FAERS Safety Report 15204821 (Version 6)
Quarter: 2025Q1

REPORT INFORMATION
  Report Type: Report from Study
  Country: CA (occurrence: CA)
  Receive Date: 20180726
  Receipt Date: 20250319
  Transmission Date: 20250409
  Serious: Yes (Hospitalization, Other)
  Sender: TAKEDA
  Company Number: CA-SHIRE-CA201826903

PATIENT
  Age: 71 Year
  Sex: Male
  Weight: 86 kg

DRUGS (36)
  1. HUMAN IMMUNOGLOBULIN G [Suspect]
     Active Substance: HUMAN IMMUNOGLOBULIN G
     Indication: Primary immunodeficiency syndrome
     Dosage: 7.5 GRAM, 1/WEEK
     Dates: start: 20180430, end: 202405
  2. HUMAN IMMUNOGLOBULIN G [Suspect]
     Active Substance: HUMAN IMMUNOGLOBULIN G
  3. HYQVIA [Suspect]
     Active Substance: HUMAN IMMUNOGLOBULIN G\HYALURONIDASE (HUMAN RECOMBINANT)
     Indication: Primary immunodeficiency syndrome
     Dosage: 35 GRAM, Q4WEEKS
     Dates: start: 20240612
  4. HYQVIA [Suspect]
     Active Substance: HUMAN IMMUNOGLOBULIN G\HYALURONIDASE (HUMAN RECOMBINANT)
     Dosage: UNK UNK, Q4WEEKS
  5. HYQVIA [Suspect]
     Active Substance: HUMAN IMMUNOGLOBULIN G\HYALURONIDASE (HUMAN RECOMBINANT)
     Dosage: 35 GRAM, Q4WEEKS
  6. HYQVIA [Suspect]
     Active Substance: HUMAN IMMUNOGLOBULIN G\HYALURONIDASE (HUMAN RECOMBINANT)
     Dosage: 35 GRAM, Q4WEEKS
     Dates: end: 202409
  7. EPIPEN [Concomitant]
     Active Substance: EPINEPHRINE
  8. BREO ELLIPTA [Concomitant]
     Active Substance: FLUTICASONE FUROATE\VILANTEROL TRIFENATATE
  9. INCRUSE ELLIPTA [Concomitant]
     Active Substance: UMECLIDINIUM BROMIDE
  10. SINGULAIR [Concomitant]
     Active Substance: MONTELUKAST SODIUM
  11. PRAVASTATIN SODIUM [Concomitant]
     Active Substance: PRAVASTATIN SODIUM
  12. SERC [Concomitant]
     Indication: Product used for unknown indication
  13. VERAPAMIL [Concomitant]
     Active Substance: VERAPAMIL HYDROCHLORIDE
     Indication: Product used for unknown indication
  14. UNSPECIFIED INGREDIENT [Concomitant]
     Active Substance: UNSPECIFIED INGREDIENT
  15. THEOPHYLLINE [Concomitant]
     Active Substance: THEOPHYLLINE
  16. PANTOPRAZOLE [Concomitant]
     Active Substance: PANTOPRAZOLE
  17. CITALOPRAM [Concomitant]
     Active Substance: CITALOPRAM
  18. Hydrobromide dextromethorphan [Concomitant]
  19. XANAX [Concomitant]
     Active Substance: ALPRAZOLAM
  20. ASPIRIN [Concomitant]
     Active Substance: ASPIRIN
  21. IRON [Concomitant]
     Active Substance: IRON
     Indication: Supplementation therapy
  22. RIVAROXABAN [Concomitant]
     Active Substance: RIVAROXABAN
  23. COLCHICINE [Concomitant]
     Active Substance: COLCHICINE
     Indication: Gout
  24. ALPRAZOLAM [Concomitant]
     Active Substance: ALPRAZOLAM
  25. ALLOPURINOL [Concomitant]
     Active Substance: ALLOPURINOL
  26. EZETIMIBE [Concomitant]
     Active Substance: EZETIMIBE
  27. MONTELUKAST [Concomitant]
     Active Substance: MONTELUKAST
  28. BETAHISTINE [Concomitant]
     Active Substance: BETAHISTINE
  29. PRAVASTATIN [Concomitant]
     Active Substance: PRAVASTATIN
  30. FINASTERIDE [Concomitant]
     Active Substance: FINASTERIDE
  31. ATROVENT [Concomitant]
     Active Substance: IPRATROPIUM BROMIDE
  32. VENTOLIN [Concomitant]
     Active Substance: ALBUTEROL SULFATE
  33. IPRATROPIUM [Concomitant]
     Active Substance: IPRATROPIUM
  34. TEZSPIRE [Concomitant]
     Active Substance: TEZEPELUMAB-EKKO
     Dosage: UNK UNK, MONTHLY
  35. ARNUITY ELLIPTA [Concomitant]
     Active Substance: FLUTICASONE FUROATE
  36. SPIRIVA [Concomitant]
     Active Substance: TIOTROPIUM BROMIDE MONOHYDRATE

REACTIONS (6)
  - Intra-abdominal fluid collection [Recovering/Resolving]
  - Pleural effusion [Recovering/Resolving]
  - Dehydration [Unknown]
  - Infusion site bruising [Unknown]
  - Blood pressure increased [Unknown]
  - Infusion site erythema [Unknown]

NARRATIVE: CASE EVENT DATE: 20240612
